FAERS Safety Report 16772539 (Version 2)
Quarter: 2019Q3

REPORT INFORMATION
  Report Type: Spontaneous
  Country: CA (occurrence: CA)
  Receive Date: 20190904
  Receipt Date: 20190905
  Transmission Date: 20191005
  Serious: No
  Sender: FDA-Public Use
  Company Number: CA-ROCHE-2398317

PATIENT
  Age: 34 Year
  Sex: Female

DRUGS (10)
  1. XOLAIR [Suspect]
     Active Substance: OMALIZUMAB
     Route: 058
     Dates: start: 20180321
  2. XOLAIR [Suspect]
     Active Substance: OMALIZUMAB
     Route: 058
     Dates: start: 20190617
  3. XOLAIR [Suspect]
     Active Substance: OMALIZUMAB
     Indication: CHRONIC SPONTANEOUS URTICARIA
     Route: 058
     Dates: start: 20180125
  4. XOLAIR [Suspect]
     Active Substance: OMALIZUMAB
     Route: 058
     Dates: start: 20180516
  5. XOLAIR [Suspect]
     Active Substance: OMALIZUMAB
     Route: 058
     Dates: start: 20180614
  6. CORTISONE [Suspect]
     Active Substance: CORTISONE
     Indication: PRODUCT USED FOR UNKNOWN INDICATION
     Route: 065
  7. BILASTINE [Concomitant]
     Active Substance: BILASTINE
     Indication: CHRONIC SPONTANEOUS URTICARIA
     Dosage: 4 DF, QD (PREND 80 MG ID)
     Route: 048
     Dates: start: 20170701
  8. XOLAIR [Suspect]
     Active Substance: OMALIZUMAB
     Route: 058
     Dates: start: 20190425
  9. XOLAIR [Suspect]
     Active Substance: OMALIZUMAB
     Route: 058
     Dates: start: 20190717
  10. BENADRYL [Concomitant]
     Active Substance: DIPHENHYDRAMINE HYDROCHLORIDE
     Indication: PRODUCT USED FOR UNKNOWN INDICATION
     Dosage: UNK UNK, PRN
     Route: 048

REACTIONS (24)
  - Pruritus [Not Recovered/Not Resolved]
  - Pyrexia [Unknown]
  - Hot flush [Recovering/Resolving]
  - Flatulence [Unknown]
  - Pain [Recovering/Resolving]
  - Abdominal pain upper [Unknown]
  - Dry mouth [Unknown]
  - Dermatitis contact [Unknown]
  - Urticaria [Not Recovered/Not Resolved]
  - Abdominal discomfort [Unknown]
  - Chills [Unknown]
  - Joint swelling [Unknown]
  - Nausea [Recovering/Resolving]
  - Dry throat [Unknown]
  - Pain in extremity [Unknown]
  - Blood pressure decreased [Unknown]
  - Fatigue [Unknown]
  - Dyskinesia [Recovering/Resolving]
  - Injection site discomfort [Unknown]
  - Erythema [Unknown]
  - Limb discomfort [Unknown]
  - Stress [Unknown]
  - Peripheral swelling [Unknown]
  - Oedema [Recovering/Resolving]

NARRATIVE: CASE EVENT DATE: 20180125
